FAERS Safety Report 9624254 (Version 1)
Quarter: 2013Q4

REPORT INFORMATION
  Report Type: Spontaneous
  Country: US (occurrence: GB)
  Receive Date: 20131015
  Receipt Date: 20131015
  Transmission Date: 20140711
  Serious: Yes (Other)
  Sender: FDA-Public Use
  Company Number: GB-PFIZER INC-2013292335

PATIENT
  Age: 61 Year
  Sex: Female

DRUGS (7)
  1. PHENYTOIN [Suspect]
     Indication: CONVULSION
     Dosage: 300 MG, DAILY
  2. SULTHIAME [Interacting]
     Indication: CONVULSION
     Dosage: 600 MG, DAILY
  3. SULTHIAME [Interacting]
     Dosage: UNK
  4. PHENSUXIMIDE [Concomitant]
     Indication: CONVULSION
     Dosage: 1000 MG, DAILY
  5. PROMAZINE [Concomitant]
     Indication: CONVULSION
     Dosage: 150 MG, DAILY
  6. DIAZEPAM [Concomitant]
     Indication: CONVULSION
     Dosage: UNK
     Dates: start: 1967
  7. ORPHENADRINE [Concomitant]
     Indication: PARKINSONISM
     Dosage: 150 MG, DAILY

REACTIONS (7)
  - Drug interaction [Unknown]
  - Toxicity to various agents [Unknown]
  - Anticonvulsant drug level increased [Recovered/Resolved]
  - Choreoathetosis [Recovered/Resolved]
  - Ataxia [Recovered/Resolved]
  - Confusional state [Recovered/Resolved]
  - Nystagmus [Recovered/Resolved]
